FAERS Safety Report 9621801 (Version 1)
Quarter: 2013Q4

REPORT INFORMATION
  Report Type: Spontaneous
  Country: CH (occurrence: CH)
  Receive Date: 20131015
  Receipt Date: 20131015
  Transmission Date: 20140711
  Serious: Yes (Disabling, Other)
  Sender: FDA-Public Use
  Company Number: PHHY2013CH114096

PATIENT
  Age: 36 Year
  Sex: Female

DRUGS (6)
  1. GILENYA [Suspect]
     Indication: RELAPSING-REMITTING MULTIPLE SCLEROSIS
     Dosage: 0.5 MG, QD
     Route: 048
     Dates: start: 20130821, end: 20131007
  2. LAMOTRIGINE [Concomitant]
     Dosage: 300 MG, QD
     Route: 048
     Dates: start: 201305
  3. LAMOTRIGINE [Concomitant]
     Dosage: 350 MG, QD
     Route: 048
     Dates: start: 20130826
  4. CITALOPRAM [Concomitant]
     Indication: DEPRESSION
     Dosage: 20 MG, QD
     Route: 048
     Dates: start: 201208
  5. SPASMO CANULASE [Concomitant]
     Indication: ABDOMINAL DISCOMFORT
     Dosage: 1 DF, TID
     Route: 048
     Dates: start: 201208
  6. YIRA [Concomitant]
     Indication: ORAL CONTRACEPTION
     Dosage: 1 DF, QD
     Route: 048
     Dates: start: 1997

REACTIONS (6)
  - Epilepsy [Not Recovered/Not Resolved]
  - Partial seizures [Not Recovered/Not Resolved]
  - Loss of consciousness [Unknown]
  - Memory impairment [Unknown]
  - Disturbance in attention [Unknown]
  - Condition aggravated [Not Recovered/Not Resolved]
